FAERS Safety Report 6300493-9 (Version None)
Quarter: 2009Q3

REPORT INFORMATION
  Report Type: 
  Country: None (occurrence: None)
  Receive Date: 20090803
  Receipt Date: 20090722
  Transmission Date: 20100115
  Serious: Yes (Hospitalization)
  Sender: FDA-Public Use
  Company Number: GXKR2009JO08360

PATIENT
  Age: 73 Year
  Sex: Male

DRUGS (2)
  1. DICLOFENAC (NGX) (DICLOFENAC) UNKNOWN [Suspect]
     Indication: BACK PAIN
  2. INDOMETHACIN [Concomitant]

REACTIONS (7)
  - ASTHENIA [None]
  - BLOOD ALBUMIN DECREASED [None]
  - GASTROINTESTINAL HAEMORRHAGE [None]
  - HAEMOGLOBIN DECREASED [None]
  - INTESTINAL DIAPHRAGM DISEASE [None]
  - PALLOR [None]
  - SYNCOPE [None]
